FAERS Safety Report 17283540 (Version 1)
Quarter: 2020Q1

REPORT INFORMATION
  Report Type: Spontaneous
  Country: US (occurrence: US)
  Receive Date: 20200117
  Receipt Date: 20200117
  Transmission Date: 20200409
  Serious: Yes (Hospitalization)
  Sender: FDA-Public Use
  Company Number: US-VERTEX PHARMACEUTICALS-2019-005170

PATIENT
  Sex: Male

DRUGS (1)
  1. SYMDEKO [Suspect]
     Active Substance: IVACAFTOR\TEZACAFTOR
     Indication: CYSTIC FIBROSIS
     Dosage: 100 MG TEZACAFTOR/150 MG IVACAFTOR; 150 MG IVACAFTOR TABLETS (FREQUENCY UNKNOWN)
     Route: 048
     Dates: start: 201812, end: 2019

REACTIONS (5)
  - Atypical mycobacterial lower respiratory tract infection [Not Recovered/Not Resolved]
  - Weight decreased [Recovering/Resolving]
  - Influenza [Unknown]
  - Pneumonia [Unknown]
  - Decreased appetite [Unknown]

NARRATIVE: CASE EVENT DATE: 2019
